FAERS Safety Report 5211358-8 (Version None)
Quarter: 2006Q4

REPORT INFORMATION
  Report Type: 
  Country: None (occurrence: None)
  Receive Date: 20061130
  Receipt Date: 20060518
  Transmission Date: 20070319
  Serious: Yes (Disabling)
  Sender: FDA-Public Use
  Company Number: WAES 0605USA03831

PATIENT
  Age: 64 Year
  Sex: Female
  Weight: 68.0396 kg

DRUGS (1)
  1. FOSAMAX [Suspect]
     Indication: OSTEONECROSIS
     Dosage: 70 MG/WKY/PO
     Route: 048
     Dates: start: 20030101, end: 20060501

REACTIONS (1)
  - PAIN IN EXTREMITY [None]
